FAERS Safety Report 5318760-4 (Version None)
Quarter: 2007Q2

REPORT INFORMATION
  Report Type: 
  Country: None (occurrence: None)
  Receive Date: 20070504
  Receipt Date: 20070504
  Transmission Date: 20071010
  Serious: Yes (Life-Threatening, Hospitalization)
  Sender: FDA-Public Use
  Company Number: None

PATIENT
  Age: 64 Year
  Sex: Male

DRUGS (1)
  1. IOVERSOL [Suspect]
     Indication: DIAGNOSTIC PROCEDURE
     Dosage: 125 ONCE IV
     Route: 042
     Dates: start: 20070216, end: 20070216

REACTIONS (7)
  - ANGIOEDEMA [None]
  - COUGH [None]
  - HYPOTENSION [None]
  - PRURITUS [None]
  - RASH [None]
  - STRIDOR [None]
  - WHEEZING [None]
